FAERS Safety Report 8013665-2 (Version None)
Quarter: 2011Q4

REPORT INFORMATION
  Report Type: 
  Country: None (occurrence: None)
  Receive Date: 20111227
  Receipt Date: 20111227
  Transmission Date: 20120403
  Serious: Yes (Other)
  Sender: FDA-Public Use
  Company Number: None

PATIENT
  Sex: Female

DRUGS (1)
  1. COPAXONE [Suspect]
     Indication: MULTIPLE SCLEROSIS
     Dosage: 20 MG DAILY SUB-Q
     Route: 058
     Dates: start: 20100324

REACTIONS (3)
  - DYSGEUSIA [None]
  - SKIN WARM [None]
  - CHEST DISCOMFORT [None]
